FAERS Safety Report 22651334 (Version 1)
Quarter: 2023Q2

REPORT INFORMATION
  Report Type: Spontaneous
  Country: SI (occurrence: SI)
  Receive Date: 20230628
  Receipt Date: 20230628
  Transmission Date: 20230721
  Serious: Yes (Hospitalization, Other)
  Sender: FDA-Public Use
  Company Number: SI-002147023-NVSC2023SI132809

PATIENT
  Age: 33 Year
  Sex: Female

DRUGS (17)
  1. PANTOPRAZOLE [Suspect]
     Active Substance: PANTOPRAZOLE
     Indication: Colitis ulcerative
     Dosage: 40 MILLIGRAM
     Route: 065
     Dates: start: 20181026
  2. FERRIC CARBOXYMALTOSE [Suspect]
     Active Substance: FERRIC CARBOXYMALTOSE
     Indication: Hypoalbuminaemia
     Dosage: 1000 MILLIGRAM
     Route: 065
     Dates: start: 201811
  3. FERRIC CARBOXYMALTOSE [Suspect]
     Active Substance: FERRIC CARBOXYMALTOSE
     Dosage: 1000 MILLIGRAM
     Route: 065
     Dates: start: 201904
  4. MESALAMINE [Concomitant]
     Active Substance: MESALAMINE
     Indication: Colitis ulcerative
     Dosage: 4 GRAM
     Route: 065
     Dates: start: 201902
  5. MESALAMINE [Concomitant]
     Active Substance: MESALAMINE
     Dosage: 3 GRAM
     Route: 065
     Dates: start: 201904
  6. MESALAMINE [Concomitant]
     Active Substance: MESALAMINE
     Dosage: 4 GRAM
     Route: 065
     Dates: start: 201811
  7. CALCIUM CARBONATE [Concomitant]
     Active Substance: CALCIUM CARBONATE
     Indication: Colitis ulcerative
     Dosage: 1 GRAM
     Route: 065
     Dates: start: 20181026
  8. METAMIZOLE SODIUM [Concomitant]
     Active Substance: METAMIZOLE SODIUM
     Dosage: UNK
     Route: 065
     Dates: start: 201811
  9. HYDROCORTISONE [Concomitant]
     Active Substance: HYDROCORTISONE
     Indication: Colitis ulcerative
     Dosage: UNK UNK, BID
     Route: 065
     Dates: start: 201811
  10. ALPRAZOLAM [Concomitant]
     Active Substance: ALPRAZOLAM
     Indication: Colitis ulcerative
     Dosage: 0.25 MILLIGRAM
     Route: 065
     Dates: start: 201811
  11. METHYLPREDNISOLONE [Concomitant]
     Active Substance: METHYLPREDNISOLONE
     Indication: Colitis ulcerative
     Dosage: 16 MILLIGRAM
     Route: 065
     Dates: start: 201904
  12. METHYLPREDNISOLONE [Concomitant]
     Active Substance: METHYLPREDNISOLONE
     Dosage: 36 MILLIGRAM, QD
     Route: 065
     Dates: start: 20181026
  13. METHYLPREDNISOLONE [Concomitant]
     Active Substance: METHYLPREDNISOLONE
     Dosage: 36 MILLIGRAM
     Route: 065
     Dates: start: 201904
  14. METHYLPREDNISOLONE [Concomitant]
     Active Substance: METHYLPREDNISOLONE
     Dosage: 36 MILLIGRAM, QD
     Route: 065
     Dates: start: 201902
  15. BUDESONIDE [Concomitant]
     Active Substance: BUDESONIDE
     Indication: Colitis ulcerative
     Dosage: 9 MILLIGRAM
     Route: 065
     Dates: start: 201811, end: 201902
  16. VITAMIN D3 [Concomitant]
     Active Substance: CHOLECALCIFEROL
     Dosage: 35 GTT DROPS, 1/WEEK
     Route: 065
     Dates: start: 201811
  17. ALFACALCIDOL [Concomitant]
     Active Substance: ALFACALCIDOL
     Indication: Colitis ulcerative
     Dosage: 1 MICROGRAM, QD
     Route: 065
     Dates: start: 20181026

REACTIONS (22)
  - Diarrhoea haemorrhagic [Not Recovered/Not Resolved]
  - Feeding disorder [Not Recovered/Not Resolved]
  - Frequent bowel movements [Not Recovered/Not Resolved]
  - Abdominal pain [Not Recovered/Not Resolved]
  - Abdominal pain lower [Not Recovered/Not Resolved]
  - Nausea [Not Recovered/Not Resolved]
  - Vomiting [Not Recovered/Not Resolved]
  - Haematochezia [Unknown]
  - Hypokalaemia [Unknown]
  - Colitis ulcerative [Unknown]
  - Oedema mucosal [Not Recovered/Not Resolved]
  - Hypoalbuminaemia [Unknown]
  - Vitamin D decreased [Unknown]
  - Anti-saccharomyces cerevisiae antibody test positive [Unknown]
  - Mucous stools [Unknown]
  - Chronic gastritis [Unknown]
  - Proctitis [Not Recovered/Not Resolved]
  - Vaginal infection [Unknown]
  - Serum ferritin decreased [Unknown]
  - Iron deficiency anaemia [Unknown]
  - Mucosal haemorrhage [Unknown]
  - Off label use [Unknown]

NARRATIVE: CASE EVENT DATE: 20181026
